FAERS Safety Report 5977469-4 (Version None)
Quarter: 2008Q4

REPORT INFORMATION
  Report Type: 
  Country: None (occurrence: None)
  Receive Date: 20081203
  Receipt Date: 20081128
  Transmission Date: 20090506
  Serious: Yes (Other)
  Sender: FDA-Public Use
  Company Number: D0059666A

PATIENT
  Age: 72 Year
  Sex: Male

DRUGS (5)
  1. ELONTRIL [Suspect]
     Route: 048
     Dates: start: 20080101
  2. AMARYL [Concomitant]
     Route: 048
  3. REMERGIL [Concomitant]
     Route: 048
  4. ALLOPURINOL [Concomitant]
     Route: 048
  5. VALPROIC ACID [Concomitant]
     Route: 065

REACTIONS (10)
  - ABNORMAL DREAMS [None]
  - DRY MOUTH [None]
  - DYSKINESIA [None]
  - FATIGUE [None]
  - HYPERHIDROSIS [None]
  - NAUSEA [None]
  - PSORIASIS [None]
  - RESTLESSNESS [None]
  - TREMOR [None]
  - VISUAL IMPAIRMENT [None]
